FAERS Safety Report 15614254 (Version 1)
Quarter: 2018Q4

REPORT INFORMATION
  Report Type: Spontaneous
  Country: US (occurrence: US)
  Receive Date: 20181113
  Receipt Date: 20181113
  Transmission Date: 20190205
  Serious: No
  Sender: FDA-Public Use
  Company Number: US-009507513-1811USA002730

PATIENT
  Sex: Male

DRUGS (1)
  1. JANUMET [Suspect]
     Active Substance: METFORMIN HYDROCHLORIDE\SITAGLIPTIN PHOSPHATE
     Indication: GLYCOSYLATED HAEMOGLOBIN INCREASED
     Dosage: 1 TABLET TWICE DAILY
     Route: 048

REACTIONS (1)
  - Diarrhoea [Unknown]
